FAERS Safety Report 12796327 (Version 1)
Quarter: 2016Q3

REPORT INFORMATION
  Report Type: Spontaneous
  Country: US (occurrence: US)
  Receive Date: 20160929
  Receipt Date: 20160929
  Transmission Date: 20161109
  Serious: No
  Sender: FDA-Public Use
  Company Number: US-INCYTE CORPORATION-2016IN002370

PATIENT
  Age: 76 Year
  Sex: Male

DRUGS (6)
  1. INC424 [Suspect]
     Active Substance: RUXOLITINIB
     Dosage: 15 MG, BID
  2. INC424 [Suspect]
     Active Substance: RUXOLITINIB
     Indication: CHRONIC LEUKAEMIA
     Dosage: 5 MG, BID
  3. RASBURICASE [Concomitant]
     Active Substance: RASBURICASE
     Indication: PRODUCT USED FOR UNKNOWN INDICATION
     Dosage: UNK
  4. ALLOPURINOL. [Concomitant]
     Active Substance: ALLOPURINOL
     Indication: PRODUCT USED FOR UNKNOWN INDICATION
     Dosage: UNK
  5. INC424 [Suspect]
     Active Substance: RUXOLITINIB
     Dosage: 20 MG, BID
  6. INC424 [Suspect]
     Active Substance: RUXOLITINIB
     Dosage: 10 MG, BID

REACTIONS (2)
  - Product use issue [Unknown]
  - Drug ineffective [Unknown]
